FAERS Safety Report 17872256 (Version 1)
Quarter: 2020Q2

REPORT INFORMATION
  Report Type: Spontaneous
  Country: IN (occurrence: IN)
  Receive Date: 20200608
  Receipt Date: 20200608
  Transmission Date: 20200714
  Serious: Yes (Life-Threatening, Other)
  Sender: FDA-Public Use
  Company Number: IN-FRESENIUS KABI-FK202005665

PATIENT
  Age: 27 Year
  Sex: Male

DRUGS (1)
  1. RIFAMPIN (MANUFACTURER UNKNOWN) [Suspect]
     Active Substance: RIFAMPIN
     Indication: TUBERCULOSIS
     Dosage: UNKNOWN
     Route: 065

REACTIONS (4)
  - Shock [Recovered/Resolved]
  - Condition aggravated [Recovered/Resolved]
  - Coeliac disease [Recovered/Resolved]
  - Acute kidney injury [Recovered/Resolved]
